FAERS Safety Report 21080016 (Version 2)
Quarter: 2022Q3

REPORT INFORMATION
  Report Type: Spontaneous
  Country: RO (occurrence: RO)
  Receive Date: 20220714
  Receipt Date: 20220722
  Transmission Date: 20221027
  Serious: No
  Sender: FDA-Public Use
  Company Number: RO-TEVA-2022-RO-2053097

PATIENT
  Sex: Male

DRUGS (1)
  1. COPAXONE [Suspect]
     Active Substance: GLATIRAMER ACETATE
     Indication: Multiple sclerosis
     Dosage: DAILY USE, UNKNOWN FORM STRENGTH
     Route: 065

REACTIONS (2)
  - Feeling abnormal [Unknown]
  - Drug intolerance [Unknown]
